FAERS Safety Report 15280600 (Version 1)
Quarter: 2018Q3

REPORT INFORMATION
  Report Type: Spontaneous
  Country: US (occurrence: US)
  Receive Date: 20180731
  Receipt Date: 20180731
  Transmission Date: 20181010
  Serious: Yes (Hospitalization)
  Sender: FDA-Public Use
  Company Number: None

PATIENT
  Age: 12 Year
  Sex: Male

DRUGS (6)
  1. ZOFRAN [Concomitant]
     Active Substance: ONDANSETRON HYDROCHLORIDE
  2. NEORAL [Suspect]
     Active Substance: CYCLOSPORINE
     Indication: GLOMERULAR VASCULAR DISORDER
     Route: 048
     Dates: start: 20170120
  3. PREDNISONE. [Concomitant]
     Active Substance: PREDNISONE
  4. MULTIVIT [Concomitant]
     Active Substance: VITAMINS
  5. AMLODIPINE [Concomitant]
     Active Substance: AMLODIPINE BESYLATE
  6. EPANED [Concomitant]
     Active Substance: ENALAPRIL MALEATE

REACTIONS (1)
  - Disease recurrence [None]

NARRATIVE: CASE EVENT DATE: 20180122
